FAERS Safety Report 24046051 (Version 5)
Quarter: 2024Q4

REPORT INFORMATION
  Report Type: Spontaneous
  Country: US (occurrence: US)
  Receive Date: 20240703
  Receipt Date: 20241217
  Transmission Date: 20250115
  Serious: Yes (Other)
  Sender: PFIZER
  Company Number: US-PFIZER INC-2018319923

PATIENT
  Age: 77 Year
  Sex: Female
  Weight: 68 kg

DRUGS (11)
  1. CELONTIN [Suspect]
     Active Substance: METHSUXIMIDE
     Indication: Epilepsy
     Dosage: 1800 MG, DAILY
     Route: 048
  2. CELONTIN [Suspect]
     Active Substance: METHSUXIMIDE
     Indication: Seizure
     Dosage: 1500 MG, DAILY
     Route: 048
  3. CELONTIN [Suspect]
     Active Substance: METHSUXIMIDE
     Indication: Clonic convulsion
     Dosage: 6X/A DAY; 1800 MG DAILY, 6 CAPSULES DAILY IN DIVIDED DOSES FOR AT LEAST 16YRS
     Route: 048
  4. CELONTIN [Suspect]
     Active Substance: METHSUXIMIDE
     Dosage: SIX 300 MG CAPSULES ONCE A DAY
     Route: 048
  5. CELONTIN [Suspect]
     Active Substance: METHSUXIMIDE
     Dosage: UNK
  6. CELONTIN [Suspect]
     Active Substance: METHSUXIMIDE
     Dosage: 300 MG, 3X/DAY
     Route: 048
  7. CELONTIN [Suspect]
     Active Substance: METHSUXIMIDE
     Dosage: 2 AM + 2 PM + 1 AFTERNOON
  8. CELONTIN [Suspect]
     Active Substance: METHSUXIMIDE
     Dosage: 600 MG AM, 300 MG AFTERNOON, 600 MG PM
  9. CELONTIN [Suspect]
     Active Substance: METHSUXIMIDE
     Dosage: 5 TIMES A DAY [5X/DAY]
     Route: 048
  10. ACETAZOLAMIDE [Concomitant]
     Active Substance: ACETAZOLAMIDE
     Dosage: 250 MG, 2X/DAY
     Route: 048
  11. DIAMOX SEQUELS [Concomitant]
     Active Substance: ACETAZOLAMIDE
     Indication: Seizure
     Dosage: 250 MG, 2X/DAY (ONCE IN THE MORNING AND EVENING)
     Route: 048

REACTIONS (19)
  - Mental impairment [Not Recovered/Not Resolved]
  - Paralysis [Unknown]
  - Therapeutic product effect incomplete [Unknown]
  - Stress [Unknown]
  - Electroencephalogram abnormal [Unknown]
  - Fatigue [Unknown]
  - Asthenia [Unknown]
  - Bradyphrenia [Unknown]
  - Memory impairment [Unknown]
  - Visual impairment [Unknown]
  - Somnolence [Unknown]
  - Pain [Unknown]
  - Tooth fracture [Unknown]
  - Malaise [Unknown]
  - Psychomotor hyperactivity [Unknown]
  - Panic reaction [Unknown]
  - Depressed mood [Unknown]
  - Prescribed overdose [Unknown]
  - Product prescribing error [Unknown]

NARRATIVE: CASE EVENT DATE: 20230928
